FAERS Safety Report 5654807-3 (Version None)
Quarter: 2008Q1

REPORT INFORMATION
  Report Type: 
  Country: None (occurrence: None)
  Receive Date: 20080307
  Receipt Date: 20070723
  Transmission Date: 20080703
  Serious: No
  Sender: FDA-Public Use
  Company Number: A0665800A

PATIENT
  Age: 75 Year
  Sex: Female

DRUGS (4)
  1. REQUIP [Suspect]
     Indication: RESTLESS LEGS SYNDROME
     Dosage: 1.5MG AS REQUIRED
     Route: 048
     Dates: start: 20060920
  2. LYRICA [Concomitant]
  3. ELAVIL [Concomitant]
  4. LIBRIUM [Concomitant]

REACTIONS (1)
  - SENSITIVITY OF TEETH [None]
